FAERS Safety Report 24053224 (Version 3)
Quarter: 2025Q2

REPORT INFORMATION
  Report Type: Spontaneous
  Country: FR (occurrence: FR)
  Receive Date: 20240705
  Receipt Date: 20250512
  Transmission Date: 20250717
  Serious: Yes (Other)
  Sender: ABBVIE
  Company Number: FR-VIIV HEALTHCARE ULC-FR2024EME078578

PATIENT
  Age: 25 Year
  Sex: Female

DRUGS (10)
  1. NORVIR [Suspect]
     Active Substance: RITONAVIR
     Indication: HIV infection
     Route: 048
  2. NORVIR [Suspect]
     Active Substance: RITONAVIR
     Indication: HIV infection
     Route: 048
  3. ETHAMBUTOL [Suspect]
     Active Substance: ETHAMBUTOL HYDROCHLORIDE
     Indication: Mycobacterium avium complex infection
     Route: 065
     Dates: start: 20240131
  4. ETHAMBUTOL [Suspect]
     Active Substance: ETHAMBUTOL HYDROCHLORIDE
     Indication: Mycobacterium avium complex infection
     Dosage: FORM STRENGTH: 1000 MG
     Route: 065
  5. RIFABUTIN [Suspect]
     Active Substance: RIFABUTIN
     Indication: Mycobacterium avium complex infection
     Route: 065
     Dates: start: 20240131
  6. AMIKACIN [Suspect]
     Active Substance: AMIKACIN
     Indication: Mycobacterium avium complex infection
     Route: 065
  7. PREZISTA [Suspect]
     Active Substance: DARUNAVIR ETHANOLATE
     Indication: HIV infection
     Route: 065
  8. PREZISTA [Suspect]
     Active Substance: DARUNAVIR ETHANOLATE
     Indication: HIV infection
     Route: 065
  9. KIVEXA [Suspect]
     Active Substance: ABACAVIR SULFATE\LAMIVUDINE
     Indication: HIV infection
     Route: 065
  10. AZITHROMYCIN [Suspect]
     Active Substance: AZITHROMYCIN
     Indication: Mycobacterium avium complex infection
     Route: 065
     Dates: start: 20240131

REACTIONS (12)
  - Atypical mycobacterium test positive [Recovering/Resolving]
  - Oesophageal candidiasis [Recovering/Resolving]
  - Mediastinal mass [Recovering/Resolving]
  - Pulmonary hilum mass [Recovering/Resolving]
  - Lymphadenopathy mediastinal [Recovering/Resolving]
  - General physical health deterioration [Recovering/Resolving]
  - Hilar lymphadenopathy [Recovering/Resolving]
  - Drug monitoring procedure incorrectly performed [Unknown]
  - Hydrocephalus [Unknown]
  - Inflammation [Recovered/Resolved]
  - Productive cough [Recovering/Resolving]
  - Maternal exposure during pregnancy [Unknown]

NARRATIVE: CASE EVENT DATE: 20230901
